FAERS Safety Report 24384643 (Version 2)
Quarter: 2024Q4

REPORT INFORMATION
  Report Type: Report from Study
  Country: CO (occurrence: CO)
  Receive Date: 20241001
  Receipt Date: 20241126
  Transmission Date: 20250115
  Serious: Yes (Life-Threatening, Other)
  Sender: INCYTE
  Company Number: CO-002147023-NVSC2021CO027495

PATIENT

DRUGS (12)
  1. RUXOLITINIB [Interacting]
     Active Substance: RUXOLITINIB
     Indication: Myelofibrosis
     Dosage: 10 MG, QD
     Route: 048
     Dates: start: 20201020
  2. RUXOLITINIB [Interacting]
     Active Substance: RUXOLITINIB
     Dosage: 40 MG, QD (2 OF 20 MG)
     Route: 048
     Dates: start: 20201022
  3. RUXOLITINIB [Interacting]
     Active Substance: RUXOLITINIB
     Dosage: 20 MG, Q12H (1 OF 10 MG)
     Route: 048
  4. RUXOLITINIB [Interacting]
     Active Substance: RUXOLITINIB
     Dosage: UNK (4 MONTHS AGO)
     Route: 048
  5. RUXOLITINIB [Interacting]
     Active Substance: RUXOLITINIB
     Dosage: 10 MG, QD
     Route: 048
  6. RUXOLITINIB [Interacting]
     Active Substance: RUXOLITINIB
     Dosage: 10 MG, Q12H (EVERY 12 HOURS)
     Route: 048
  7. METOPROLOL [Suspect]
     Active Substance: METOPROLOL
     Indication: Hypertension
     Dosage: UNK, QD (8 YEARS AGO)
     Route: 048
  8. GEMFIBROZIL [Interacting]
     Active Substance: GEMFIBROZIL
     Indication: Product used for unknown indication
     Dosage: UNK
     Route: 065
  9. ASPIRIN [Concomitant]
     Active Substance: ASPIRIN
     Indication: Prophylaxis
     Dosage: 100 MG, QD (8 YEARS AGO)
     Route: 048
  10. ENALAPRIL [Concomitant]
     Active Substance: ENALAPRIL
     Indication: Hypertension
     Dosage: 40 MG, QD (8 YEARS AGO)
     Route: 048
  11. ENALAPRIL [Concomitant]
     Active Substance: ENALAPRIL
     Dosage: 2 DOSAGE FORM, QD
     Route: 065
  12. LEVOTHYROXINE [Concomitant]
     Active Substance: LEVOTHYROXINE
     Indication: Hypothyroidism
     Dosage: UNK, QD (8 YEARS AGO)
     Route: 048

REACTIONS (21)
  - Pallor [Unknown]
  - Limb discomfort [Unknown]
  - Coagulopathy [Unknown]
  - Myelofibrosis [Unknown]
  - Blood pressure increased [Unknown]
  - Condition aggravated [Unknown]
  - Ill-defined disorder [Unknown]
  - Haemoglobin decreased [Unknown]
  - Platelet count increased [Not Recovered/Not Resolved]
  - Memory impairment [Unknown]
  - Drug interaction [Unknown]
  - Nervousness [Unknown]
  - Off label use [Unknown]
  - Platelet count decreased [Unknown]
  - Gait disturbance [Unknown]
  - Osteoarthritis [Not Recovered/Not Resolved]
  - Illness [Unknown]
  - Fatigue [Unknown]
  - Malaise [Unknown]
  - Underweight [Unknown]
  - Pain in extremity [Unknown]
